FAERS Safety Report 4817897-3 (Version None)
Quarter: 2005Q3

REPORT INFORMATION
  Report Type: 
  Country: None (occurrence: None)
  Receive Date: 20050929
  Receipt Date: 20050622
  Transmission Date: 20060218
  Serious: No
  Sender: FDA-Public Use
  Company Number: 05P-163-0303808-00

PATIENT
  Age: 54 Year
  Sex: Female
  Weight: 77.1115 kg

DRUGS (16)
  1. HUMIRA [Suspect]
     Indication: RHEUMATOID ARTHRITIS
     Dosage: 40 MG, 1 IN 2 WK, SUBCUTANEOUS
     Route: 058
     Dates: start: 20040301
  2. TYLENOL W/ CODEINE NO. 3 [Concomitant]
  3. LEVOTHYROXINE [Concomitant]
  4. ATENOLOL [Concomitant]
  5. METHOTREXATE [Concomitant]
  6. FOLIC ACID [Concomitant]
  7. PAROXETINE HYDROCHLORIDE [Concomitant]
  8. PHENYTOIN SODIUM [Concomitant]
  9. LORAZEPAM [Concomitant]
  10. TRAZODONE HCL [Concomitant]
  11. METOLAZONE [Concomitant]
  12. FUROSEMIDE [Concomitant]
  13. QUINIDINE HCL [Concomitant]
  14. PROCHLORPERAZINE EDISYLATE [Concomitant]
  15. FENTANYL [Concomitant]
  16. VICODIN [Concomitant]

REACTIONS (2)
  - RASH [None]
  - RASH PRURITIC [None]
